FAERS Safety Report 20136919 (Version 1)
Quarter: 2021Q4

REPORT INFORMATION
  Report Type: Spontaneous
  Country: US (occurrence: None)
  Receive Date: 20211201
  Receipt Date: 20211201
  Transmission Date: 20220303
  Serious: Yes (Hospitalization)
  Sender: FDA-Public Use
  Company Number: None

PATIENT
  Sex: Female

DRUGS (12)
  1. ORENCIA [Suspect]
     Active Substance: ABATACEPT
     Indication: Rheumatoid arthritis
     Dosage: OTHER FREQUENCY : Q 7 DAYS;?
     Route: 058
     Dates: start: 20190917
  2. AZELASTINE [Concomitant]
     Active Substance: AZELASTINE
  3. CYCLOBENZAPRINE [Concomitant]
     Active Substance: CYCLOBENZAPRINE
  4. LEVOTHYROXINE [Concomitant]
     Active Substance: LEVOTHYROXINE
  5. MONTELUKAST [Concomitant]
     Active Substance: MONTELUKAST SODIUM
  6. ALBUTEROL [Concomitant]
     Active Substance: ALBUTEROL
  7. RISEDRONATE SODIUM [Concomitant]
     Active Substance: RISEDRONATE SODIUM
  8. ZOPLIDEM [Concomitant]
  9. ESTRADIOL [Concomitant]
     Active Substance: ESTRADIOL
  10. METHOTREXATE [Concomitant]
     Active Substance: METHOTREXATE
  11. TRAMADOL [Concomitant]
     Active Substance: TRAMADOL
  12. BUPROPION HYDROCHLORIDE [Concomitant]
     Active Substance: BUPROPION HYDROCHLORIDE

REACTIONS (2)
  - Hip arthroplasty [None]
  - Therapy interrupted [None]
